FAERS Safety Report 18362883 (Version 2)
Quarter: 2020Q4

REPORT INFORMATION
  Report Type: Report from Study
  Country: AR (occurrence: AR)
  Receive Date: 20201009
  Receipt Date: 20201023
  Transmission Date: 20210114
  Serious: Yes (Other)
  Sender: FDA-Public Use
  Company Number: AR-BEH-2020123477

PATIENT

DRUGS (1)
  1. ALBUMIN HUMAN (GENERIC) [Suspect]
     Active Substance: ALBUMIN HUMAN
     Indication: PLASMAPHERESIS
     Dosage: 5 SESSIONS AT 24 HOURS INTERVALS
     Route: 065

REACTIONS (3)
  - Coagulation factor XIII level decreased [Recovered/Resolved]
  - Post procedural haemorrhage [Recovered/Resolved]
  - Haematocrit decreased [Recovered/Resolved]
